FAERS Safety Report 5604071-6 (Version None)
Quarter: 2008Q1

REPORT INFORMATION
  Report Type: 
  Country: None (occurrence: None)
  Receive Date: 20080128
  Receipt Date: 20080124
  Transmission Date: 20080703
  Serious: Yes (Other)
  Sender: FDA-Public Use
  Company Number: FR-BRISTOL-MYERS SQUIBB COMPANY-14053581

PATIENT
  Age: 66 Year
  Sex: Female

DRUGS (4)
  1. TAXOL [Suspect]
     Indication: LUNG NEOPLASM MALIGNANT
  2. TAXOL [Suspect]
     Indication: METASTASES TO BONE
  3. CARBOPLATIN [Concomitant]
  4. MORPHINE [Concomitant]
     Route: 042

REACTIONS (2)
  - AKINESIA [None]
  - MYOCARDIAL ISCHAEMIA [None]
